FAERS Safety Report 20299093 (Version 2)
Quarter: 2022Q2

REPORT INFORMATION
  Report Type: Spontaneous
  Country: US (occurrence: US)
  Receive Date: 20220105
  Receipt Date: 20220429
  Transmission Date: 20220721
  Serious: No
  Sender: FDA-Public Use
  Company Number: US-PFIZER INC-202101872040

PATIENT
  Age: 70 Year
  Sex: Female

DRUGS (1)
  1. IBRANCE [Suspect]
     Active Substance: PALBOCICLIB
     Dosage: TAKE 1 TAB PER ORAL EVERY DAY ON DAYS 1-14 Q 28 DAYS. 14 DAYS ON AND 14 DAYS OFF. TAKE WITH FOOD
     Route: 048

REACTIONS (4)
  - Neoplasm progression [Unknown]
  - White blood cell count decreased [Unknown]
  - Off label use [Unknown]
  - Product use issue [Unknown]
